FAERS Safety Report 4448607-X (Version None)
Quarter: 2004Q3

REPORT INFORMATION
  Report Type: 
  Country: None (occurrence: None)
  Receive Date: 20040909
  Receipt Date: 20040826
  Transmission Date: 20050211
  Serious: Yes (Other)
  Sender: FDA-Public Use
  Company Number: ST-2004-008042

PATIENT
  Age: 78 Year
  Sex: Male

DRUGS (10)
  1. OLMETEC [Suspect]
     Indication: ESSENTIAL HYPERTENSION
     Dosage: 40 MG QD PO
     Route: 048
     Dates: start: 20040602, end: 20040630
  2. PIMENOL [Concomitant]
  3. NORVASC [Concomitant]
  4. ISOSORBIDE MONONITRATE [Concomitant]
  5. CARDENALIN [Concomitant]
  6. ECBARL [Concomitant]
  7. PANALDINE [Concomitant]
  8. ALMARL [Concomitant]
  9. FLUITRAN [Concomitant]
  10. URINORM [Concomitant]

REACTIONS (1)
  - ATRIAL FIBRILLATION [None]
